FAERS Safety Report 7392431-5 (Version None)
Quarter: 2011Q2

REPORT INFORMATION
  Report Type: 
  Country: None (occurrence: None)
  Receive Date: 20110404
  Receipt Date: 20110325
  Transmission Date: 20111010
  Serious: Yes (Hospitalization, Other)
  Sender: FDA-Public Use
  Company Number: US-ASTRAZENECA-2010SE35497

PATIENT
  Age: 69 Year
  Sex: Female

DRUGS (5)
  1. PLAVIX [Concomitant]
  2. PREDNISONE [Concomitant]
  3. CRESTOR [Suspect]
     Route: 048
  4. LOPRESSOR [Concomitant]
  5. INSULIN [Concomitant]

REACTIONS (12)
  - RENAL FAILURE [None]
  - MYOPATHY [None]
  - MYOTONIA [None]
  - HEPATIC FAILURE [None]
  - RESPIRATORY FAILURE [None]
  - PROTHROMBIN TIME PROLONGED [None]
  - RHABDOMYOLYSIS [None]
  - WALKING AID USER [None]
  - PARALYSIS [None]
  - MYALGIA [None]
  - BLOOD CREATINE PHOSPHOKINASE INCREASED [None]
  - MYOGLOBIN URINE PRESENT [None]
